FAERS Safety Report 16933239 (Version 6)
Quarter: 2023Q4

REPORT INFORMATION
  Report Type: Report from Study
  Country: JP (occurrence: JP)
  Receive Date: 20191018
  Receipt Date: 20231130
  Transmission Date: 20240110
  Serious: Yes (Hospitalization, Other)
  Sender: FDA-Public Use
  Company Number: JP-VIIV HEALTHCARE LIMITED-JP2018JPN211229

PATIENT

DRUGS (6)
  1. DOLUTEGRAVIR [Suspect]
     Active Substance: DOLUTEGRAVIR
     Indication: HIV infection
     Dosage: 50 MG, 1D
     Route: 048
     Dates: start: 20171003
  2. DESCOVY [Suspect]
     Active Substance: EMTRICITABINE\TENOFOVIR ALAFENAMIDE FUMARATE
     Indication: HIV infection
     Dosage: 1 DF, 1D
     Route: 048
     Dates: start: 20171003
  3. EPINASTINE [Concomitant]
     Active Substance: EPINASTINE
     Dosage: UNK
     Dates: start: 20171003, end: 201712
  4. LIDOCAINE\TRIBENOSIDE [Concomitant]
     Active Substance: LIDOCAINE\TRIBENOSIDE
     Indication: Haemorrhoids
     Dosage: UNK
     Dates: start: 20180131, end: 20200120
  5. LIDOCAINE\TRIBENOSIDE [Concomitant]
     Active Substance: LIDOCAINE\TRIBENOSIDE
     Dosage: UNK
     Dates: start: 20201120
  6. GENTAMICIN SULFATE [Concomitant]
     Active Substance: GENTAMICIN SULFATE
     Indication: Haemorrhoids
     Dosage: UNK
     Dates: start: 20181128, end: 20200120

REACTIONS (8)
  - Blood uric acid increased [Recovered/Resolved]
  - Tinea pedis [Recovering/Resolving]
  - Acne [Recovering/Resolving]
  - Pruritus genital [Recovering/Resolving]
  - Pharyngeal chlamydia infection [Recovering/Resolving]
  - Head injury [Recovered/Resolved]
  - Dry skin [Recovering/Resolving]
  - Seborrhoeic dermatitis [Recovering/Resolving]

NARRATIVE: CASE EVENT DATE: 20171124
